FAERS Safety Report 9469942 (Version 1)
Quarter: 2013Q3

REPORT INFORMATION
  Report Type: Spontaneous
  Country: US (occurrence: None)
  Receive Date: 20130820
  Receipt Date: 20130820
  Transmission Date: 20140515
  Serious: Yes (Life-Threatening, Hospitalization)
  Sender: FDA-Public Use
  Company Number: None

PATIENT
  Age: 63 Year
  Sex: Male
  Weight: 59.5 kg

DRUGS (2)
  1. LINEZOLID [Suspect]
     Indication: SKIN INFECTION
     Route: 048
     Dates: start: 20110915, end: 20111014
  2. LINEZOLID [Suspect]
     Indication: SOFT TISSUE INFECTION
     Route: 048
     Dates: start: 20110915, end: 20111014

REACTIONS (3)
  - Thrombocytopenia [None]
  - Anaemia [None]
  - Epistaxis [None]
